FAERS Safety Report 5789904-5 (Version None)
Quarter: 2008Q2

REPORT INFORMATION
  Report Type: 
  Country: None (occurrence: None)
  Receive Date: 20080626
  Receipt Date: 20080618
  Transmission Date: 20081010
  Serious: Yes (Other)
  Sender: FDA-Public Use
  Company Number: US-ASTRAZENECA-2008UW12276

PATIENT
  Sex: Female

DRUGS (1)
  1. RHINOCORT [Suspect]
     Route: 055

REACTIONS (1)
  - SKIN LACERATION [None]
